FAERS Safety Report 9564839 (Version 1)
Quarter: 2013Q3

REPORT INFORMATION
  Report Type: Spontaneous
  Country: SE (occurrence: SE)
  Receive Date: 20130930
  Receipt Date: 20130930
  Transmission Date: 20140515
  Serious: Yes (Hospitalization)
  Sender: FDA-Public Use
  Company Number: SE-JNJFOC-20130912969

PATIENT
  Age: 83 Year
  Sex: Female

DRUGS (5)
  1. HALDOL [Suspect]
     Indication: PRODUCT USED FOR UNKNOWN INDICATION
     Route: 065
     Dates: end: 201308
  2. VENLAFAXINE [Suspect]
     Indication: PRODUCT USED FOR UNKNOWN INDICATION
     Route: 065
     Dates: end: 201308
  3. LEVAXIN [Concomitant]
     Route: 065
  4. METFORMIN [Concomitant]
     Route: 065
  5. WARAN [Concomitant]
     Route: 065

REACTIONS (7)
  - Somnolence [Recovered/Resolved]
  - Hallucination [Recovered/Resolved]
  - Confusional state [Recovered/Resolved]
  - Tachycardia [Unknown]
  - Oxygen saturation decreased [Unknown]
  - Troponin increased [Unknown]
  - Infection [Unknown]
